FAERS Safety Report 7781301-6 (Version None)
Quarter: 2011Q3

REPORT INFORMATION
  Report Type: 
  Country: None (occurrence: None)
  Receive Date: 20110927
  Receipt Date: 20110914
  Transmission Date: 20111222
  Serious: Yes (Life-Threatening, Hospitalization)
  Sender: FDA-Public Use
  Company Number: CA-BAYER-2011-085966

PATIENT
  Age: 49 Year
  Sex: Female

DRUGS (4)
  1. NAPROXEN (ALEVE) [Suspect]
     Dosage: 220 MG, UNK
     Route: 048
  2. SERTRALINE HYDROCHLORIDE [Concomitant]
     Route: 048
  3. DOMPERIDONE [Concomitant]
     Route: 048
  4. NEXIUM [Concomitant]
     Route: 048

REACTIONS (4)
  - DYSPNOEA [None]
  - ANAPHYLACTIC REACTION [None]
  - PAIN IN EXTREMITY [None]
  - OEDEMA [None]
